FAERS Safety Report 17703439 (Version 1)
Quarter: 2020Q2

REPORT INFORMATION
  Report Type: Spontaneous
  Country: GB (occurrence: GB)
  Receive Date: 20200424
  Receipt Date: 20200424
  Transmission Date: 20200714
  Serious: Yes (Life-Threatening, Other)
  Sender: FDA-Public Use
  Company Number: GB-AUROBINDO-AUR-APL-2020-020326

PATIENT
  Age: 25 Year
  Sex: Male
  Weight: 87 kg

DRUGS (5)
  1. LANSOPRAZOLE. [Suspect]
     Active Substance: LANSOPRAZOLE
     Indication: BACK PAIN
     Dosage: UNK (LANSOPRAZOL 28)
     Route: 048
     Dates: start: 20200312, end: 20200402
  2. NAPROXEN. [Suspect]
     Active Substance: NAPROXEN
     Indication: BACK PAIN
     Dosage: UNK (NAPROXEN 28)
     Route: 048
     Dates: start: 20200312, end: 20200402
  3. AMITRIPTYLINE [Suspect]
     Active Substance: AMITRIPTYLINE
     Indication: BACK PAIN
     Dosage: UNK (AMITRIPTYLINE 14)
     Route: 048
     Dates: start: 20200312, end: 20200402
  4. COCODAMOL [Suspect]
     Active Substance: ACETAMINOPHEN\CODEINE PHOSPHATE
     Indication: BACK PAIN
     Dosage: UNK (CO-CODAMOL 100)
     Route: 048
     Dates: start: 20200312, end: 20200402
  5. PREGABALINA RANBAXY [Suspect]
     Active Substance: PREGABALIN
     Indication: BACK PAIN
     Dosage: UNK (PREGABALIN 56)
     Route: 048
     Dates: start: 20200312, end: 20200402

REACTIONS (3)
  - Stress [Unknown]
  - Drug ineffective [Not Recovered/Not Resolved]
  - Pain [Unknown]

NARRATIVE: CASE EVENT DATE: 20200312
